FAERS Safety Report 10683219 (Version 1)
Quarter: 2014Q4

REPORT INFORMATION
  Report Type: Report from Study
  Country: DE (occurrence: ES)
  Receive Date: 20141230
  Receipt Date: 20141230
  Transmission Date: 20150529
  Serious: Yes (Death)
  Sender: FDA-Public Use
  Company Number: DE-ACTELION-A-NJ2014-110349

PATIENT
  Sex: Male

DRUGS (6)
  1. SPIRONOLACTONE. [Concomitant]
     Active Substance: SPIRONOLACTONE
  2. OXYGEN. [Concomitant]
     Active Substance: OXYGEN
  3. VENTAVIS [Suspect]
     Active Substance: ILOPROST
     Indication: PRODUCT USED FOR UNKNOWN INDICATION
     Dosage: UNK
     Route: 055
     Dates: start: 20130430
  4. SILDENAFIL. [Concomitant]
     Active Substance: SILDENAFIL
  5. SINTROM [Concomitant]
     Active Substance: ACENOCOUMAROL
  6. SEGURIL [Concomitant]
     Active Substance: FUROSEMIDE

REACTIONS (1)
  - Disease progression [Fatal]
